FAERS Safety Report 23798979 (Version 1)
Quarter: 2024Q2

REPORT INFORMATION
  Report Type: Spontaneous
  Country: US (occurrence: None)
  Receive Date: 20240427
  Receipt Date: 20240427
  Transmission Date: 20240716
  Serious: No
  Sender: FDA-Public Use
  Company Number: None

PATIENT
  Age: 76 Year
  Sex: Male
  Weight: 108 kg

DRUGS (2)
  1. DAPTOMYCIN [Suspect]
     Active Substance: DAPTOMYCIN
     Dosage: FREQUENCY : DAILY;?
     Route: 042
     Dates: start: 20230225, end: 20230311
  2. ERTAPENEM. [Suspect]
     Active Substance: ERTAPENEM SODIUM
     Dosage: FREQUENCY : DAILY;?
     Route: 042
     Dates: start: 20230225, end: 20230311

REACTIONS (4)
  - Neurotoxicity [None]
  - Encephalopathy [None]
  - Hyperkalaemia [None]
  - Hyperphosphataemia [None]

NARRATIVE: CASE EVENT DATE: 20230303
